FAERS Safety Report 6013945-6 (Version None)
Quarter: 2008Q4

REPORT INFORMATION
  Report Type: 
  Country: None (occurrence: None)
  Receive Date: 20081219
  Receipt Date: 20081218
  Transmission Date: 20090506
  Serious: Yes (Disabling)
  Sender: FDA-Public Use
  Company Number: FR-MERCK-0812FRA00053

PATIENT
  Age: 52 Year
  Sex: Male
  Weight: 83 kg

DRUGS (6)
  1. JANUVIA [Suspect]
     Indication: TYPE 2 DIABETES MELLITUS
     Route: 048
     Dates: start: 20081018, end: 20081101
  2. ASPIRIN LYSINE [Concomitant]
     Route: 048
  3. METFORMIN [Concomitant]
     Indication: TYPE 2 DIABETES MELLITUS
     Route: 048
  4. PERINDOPRIL ARGININE [Concomitant]
     Indication: HYPERTENSION
     Route: 048
  5. ATORVASTATIN CALCIUM [Concomitant]
     Indication: DYSLIPIDAEMIA
     Route: 048
  6. CLOPIDOGREL BISULFATE [Concomitant]
     Indication: ARTERIAL DISORDER
     Route: 048

REACTIONS (2)
  - PAIN [None]
  - SKIN EXFOLIATION [None]
